FAERS Safety Report 9641764 (Version 2)
Quarter: 2013Q4

REPORT INFORMATION
  Report Type: Spontaneous
  Country: NL (occurrence: NL)
  Receive Date: 20131023
  Receipt Date: 20131218
  Transmission Date: 20140711
  Serious: Yes (Other)
  Sender: FDA-Public Use
  Company Number: ALCN2013NL005010

PATIENT
  Age: 56 Year
  Sex: Male

DRUGS (2)
  1. NEVANAC [Suspect]
     Indication: POSTOPERATIVE CARE
     Dosage: 1 GTT, TID
     Route: 047
     Dates: start: 20130910, end: 20130927
  2. NEVANAC [Suspect]
     Indication: MACULAR OEDEMA

REACTIONS (1)
  - Ulcerative keratitis [Recovered/Resolved with Sequelae]
